FAERS Safety Report 9179474 (Version 1)
Quarter: 2012Q4

REPORT INFORMATION
  Report Type: 
  Country: US (occurrence: US)
  Receive Date: 20121029
  Receipt Date: 20121029
  Transmission Date: 20130627
  Serious: No
  Sender: FDA-Public Use
  Company Number: US-AMGEN-USASP2012055723

PATIENT
  Age: 65 Year
  Sex: Male
  Weight: 95.24 kg

DRUGS (8)
  1. ENBREL [Suspect]
     Indication: PRODUCT USED FOR UNKNOWN INDICATION
     Dosage: 25 mg, 2 times/wk
     Route: 058
  2. METHOTREXATE [Concomitant]
     Dosage: 2.5 mg, UNK
  3. CLARITIN                           /00413701/ [Concomitant]
     Dosage: 10 mg, UNK
  4. RELAFEN [Concomitant]
     Dosage: 750 mg, UNK
  5. ASPIRIN [Concomitant]
     Dosage: 325 mg, UNK
  6. VITAMIN E                          /00110501/ [Concomitant]
     Dosage: 4000 unit, UNK
  7. VITAMIN D /00107901/ [Concomitant]
     Dosage: 2000 unit, UNK
  8. CALCIUM D                          /00944201/ [Concomitant]
     Dosage: UNK

REACTIONS (3)
  - Nasopharyngitis [Unknown]
  - Musculoskeletal stiffness [Unknown]
  - Condition aggravated [Unknown]
